FAERS Safety Report 11824129 (Version 1)
Quarter: 2015Q4

REPORT INFORMATION
  Report Type: Report from Study
  Country: US (occurrence: US)
  Receive Date: 20151210
  Receipt Date: 20151210
  Transmission Date: 20160305
  Serious: Yes (Death, Other)
  Sender: FDA-Public Use
  Company Number: US-BAXTER-2015BAX066244

PATIENT

DRUGS (10)
  1. METHOTREXATE [Suspect]
     Active Substance: METHOTREXATE
     Dosage: ON DAY 1 FOR CYCLES 2 AND 4 (21 DAY CYCLES)
     Route: 042
  2. VINCRISTINE [Suspect]
     Active Substance: VINCRISTINE
     Indication: PERIPHERAL T-CELL LYMPHOMA UNSPECIFIED
     Dosage: MAX 2 MG, ON DAY 4 AND 11 FOR CYCLES 1 AND 3 (21 DAY CYCLES)
     Route: 042
  3. CYTARABINE. [Suspect]
     Active Substance: CYTARABINE
     Indication: PERIPHERAL T-CELL LYMPHOMA UNSPECIFIED
     Dosage: 3 G/M2 OR 1 G/M2 OVER 2 HOUR EVERY 12 HOUR FOR FOUR DOSES ON DAY 3 AND 4 FOR CYCLES 2 AND 4 (21 DAY
     Route: 042
  4. LEUCOVORIN. [Concomitant]
     Active Substance: LEUCOVORIN
     Indication: SUPPORTIVE CARE
     Dosage: FOR CYCLES 2 AND 4 (21 DAY CYCLES)
     Route: 065
  5. PEGYLATED LIPOSOMAL DOXORUBICIN [Suspect]
     Active Substance: DOXORUBICIN
     Indication: PERIPHERAL T-CELL LYMPHOMA UNSPECIFIED
     Dosage: ON DAY 2 FOR CYCLES 1 AND 3 (21 DAY CYCLES)
     Route: 042
  6. DEXAMETHASONE. [Suspect]
     Active Substance: DEXAMETHASONE
     Indication: PERIPHERAL T-CELL LYMPHOMA UNSPECIFIED
     Dosage: ON DAYS 1-4 AND 11-14 FOR CYCLES 1 AND 3 (21 DAY CYCLES)
     Route: 042
  7. FILGRASTIM [Suspect]
     Active Substance: FILGRASTIM
     Indication: INFECTION PROPHYLAXIS
     Dosage: 24 HOURS AFTER COMPLETION OF DAY 4 VINCRISTINE
     Route: 058
  8. MESNA. [Concomitant]
     Active Substance: MESNA
     Indication: SUPPORTIVE CARE
     Dosage: ON DAYS 1 TO 3 FOR CYCLES 1 AND 3 (21 DAY CYCLES)
     Route: 042
  9. CYCLOPHOSPHAMIDE FOR INJECTION, USP [Suspect]
     Active Substance: CYCLOPHOSPHAMIDE
     Indication: PERIPHERAL T-CELL LYMPHOMA UNSPECIFIED
     Dosage: EVERY 12 HOURS FOR SIX DOSES ON DAYS 1 TO 3 FOR CYCLES 1 AND 3 (21 DAY CYCLES)
     Route: 042
  10. METHOTREXATE [Suspect]
     Active Substance: METHOTREXATE
     Indication: PERIPHERAL T-CELL LYMPHOMA UNSPECIFIED
     Dosage: ON DAY 1 FOR CYCLES 2 AND 4 (21 DAY CYCLES)
     Route: 042

REACTIONS (2)
  - Cytomegalovirus infection [Not Recovered/Not Resolved]
  - Acute respiratory distress syndrome [Fatal]
